FAERS Safety Report 4959386-1 (Version None)
Quarter: 2006Q1

REPORT INFORMATION
  Report Type: 
  Country: None (occurrence: None)
  Receive Date: 20060331
  Receipt Date: 20051123
  Transmission Date: 20060701
  Serious: Yes (Hospitalization)
  Sender: FDA-Public Use
  Company Number: US-MERCK-0511USA04007

PATIENT
  Age: 64 Year
  Sex: Female
  Weight: 55 kg

DRUGS (10)
  1. VIOXX [Suspect]
     Indication: ARTHRITIS
     Route: 048
     Dates: start: 20040801, end: 20040929
  2. ALBUTEROL [Concomitant]
     Route: 065
  3. FLOVENT [Concomitant]
     Route: 065
  4. LEVOXYL [Concomitant]
     Route: 065
  5. LORTAB [Concomitant]
     Route: 065
  6. NEXIUM [Concomitant]
     Route: 065
  7. PREMARIN [Concomitant]
     Route: 065
  8. SINGULAIR [Concomitant]
     Route: 065
  9. HYDROCHLOROTHIAZIDE AND SPIRONOLACTONE [Concomitant]
     Route: 065
  10. ZYRTEC [Concomitant]
     Route: 065

REACTIONS (20)
  - ACUTE MYOCARDIAL INFARCTION [None]
  - ANAEMIA [None]
  - ANGINA PECTORIS [None]
  - BLOOD CHOLESTEROL INCREASED [None]
  - CARDIAC FAILURE [None]
  - CARDIOPULMONARY FAILURE [None]
  - CHEST PAIN [None]
  - CHRONIC OBSTRUCTIVE PULMONARY DISEASE [None]
  - CORONARY ARTERY DISEASE [None]
  - EPISTAXIS [None]
  - GASTROOESOPHAGEAL REFLUX DISEASE [None]
  - HYPERTENSION [None]
  - HYPOKALAEMIA [None]
  - NON-CARDIAC CHEST PAIN [None]
  - PULMONARY HYPERTENSION [None]
  - RETINAL HAEMORRHAGE [None]
  - SNAKE BITE [None]
  - VENTRICULAR DYSFUNCTION [None]
  - VENTRICULAR FIBRILLATION [None]
  - VENTRICULAR TACHYCARDIA [None]
